FAERS Safety Report 8810140 (Version 2)
Quarter: 2013Q2

REPORT INFORMATION
  Report Type: Spontaneous
  Country: US (occurrence: US)
  Receive Date: 20120926
  Receipt Date: 20130607
  Transmission Date: 20140414
  Serious: No
  Sender: FDA-Public Use
  Company Number: US-PFIZER INC-2012238489

PATIENT
  Age: 46 Year
  Sex: Female
  Weight: 63.04 kg

DRUGS (3)
  1. LYRICA [Suspect]
     Indication: FIBROMYALGIA
     Dosage: 75 MG, 3X/DAY
     Route: 048
     Dates: end: 20130602
  2. NORCO [Concomitant]
     Indication: FIBROMYALGIA
     Dosage: 5 MG, UNK
  3. THYRONORM [Concomitant]
     Dosage: UNK

REACTIONS (6)
  - Withdrawal syndrome [Unknown]
  - Dizziness [Unknown]
  - Anxiety [Not Recovered/Not Resolved]
  - Drug ineffective [Unknown]
  - Drug dose omission [Unknown]
  - Incorrect storage of drug [Unknown]
